FAERS Safety Report 9300383 (Version 2)
Quarter: 2013Q2

REPORT INFORMATION
  Report Type: Report from Study
  Country: DE (occurrence: DE)
  Receive Date: 20130521
  Receipt Date: 20130611
  Transmission Date: 20140414
  Serious: Yes (Congenital Anomaly)
  Sender: FDA-Public Use
  Company Number: DE-UCBSA-086385

PATIENT
  Sex: 0

DRUGS (1)
  1. LEVETIRACETAM [Suspect]
     Indication: EPILEPSY
     Dosage: 4000 MG/DAY
     Route: 064

REACTIONS (2)
  - Urethral valves [Unknown]
  - Foetal exposure during pregnancy [Recovered/Resolved]
